FAERS Safety Report 6831148-X (Version None)
Quarter: 2010Q3

REPORT INFORMATION
  Report Type: 
  Country: None (occurrence: None)
  Receive Date: 20100712
  Receipt Date: 20100607
  Transmission Date: 20110219
  Serious: No
  Sender: FDA-Public Use
  Company Number: US-BAYER-01/03528-USE

PATIENT
  Age: 52 Year
  Sex: Male

DRUGS (2)
  1. BETASERON [Suspect]
     Indication: RELAPSING-REMITTING MULTIPLE SCLEROSIS
     Dosage: AS USED: 8 MIU
     Route: 058
     Dates: start: 19980701, end: 20040101
  2. BETASERON [Suspect]
     Route: 058
     Dates: start: 19950101, end: 20010101

REACTIONS (2)
  - MULTIPLE SCLEROSIS [None]
  - MUSCLE SPASTICITY [None]
